FAERS Safety Report 8089545-3 (Version None)
Quarter: 2012Q1

REPORT INFORMATION
  Report Type: 
  Country: None (occurrence: None)
  Receive Date: 20120128
  Receipt Date: 20110621
  Transmission Date: 20120608
  Serious: No
  Sender: FDA-Public Use
  Company Number: US-ABBOTT-11P-163-0733245-00

PATIENT
  Sex: Female
  Weight: 56.75 kg

DRUGS (5)
  1. METHOTREXATE [Suspect]
     Indication: JUVENILE ARTHRITIS
     Route: 048
     Dates: start: 20110201, end: 20110610
  2. LEUCOVORIN CALCIUM [Concomitant]
     Indication: SUPPLEMENTATION THERAPY
     Dosage: TAKE AFTER METHOTREXATE
     Route: 048
     Dates: end: 20110610
  3. ASCORBIC ACID [Concomitant]
     Indication: SUPPLEMENTATION THERAPY
     Route: 048
  4. VITAMIN D [Concomitant]
     Indication: SUPPLEMENTATION THERAPY
     Route: 048
  5. HUMIRA [Suspect]
     Indication: JUVENILE ARTHRITIS
     Route: 058
     Dates: start: 20110301

REACTIONS (3)
  - HYPERACUSIS [None]
  - NAUSEA [None]
  - PHOTOSENSITIVITY REACTION [None]
